FAERS Safety Report 10684337 (Version 2)
Quarter: 2015Q1

REPORT INFORMATION
  Report Type: Spontaneous
  Country: US (occurrence: US)
  Receive Date: 20141231
  Receipt Date: 20150121
  Transmission Date: 20150720
  Serious: No
  Sender: FDA-Public Use
  Company Number: US-ASTRAZENECA-2014SE87902

PATIENT
  Age: 825 Month
  Sex: Male
  Weight: 108.9 kg

DRUGS (3)
  1. SYMBICORT [Suspect]
     Active Substance: BUDESONIDE\FORMOTEROL FUMARATE DIHYDRATE
     Indication: ASTHMA
     Dosage: 160-4.5 MCG, 2 PUFFS BID
     Route: 055
  2. OXYCODONE [Concomitant]
     Active Substance: OXYCODONE
  3. SYMBICORT [Suspect]
     Active Substance: BUDESONIDE\FORMOTEROL FUMARATE DIHYDRATE
     Indication: ASTHMA
     Dosage: 320 UG  BID
     Route: 055
     Dates: start: 201402

REACTIONS (4)
  - Dyspnoea [Recovering/Resolving]
  - Off label use [Unknown]
  - Heart rate irregular [Unknown]
  - Drug dose omission [Not Recovered/Not Resolved]

NARRATIVE: CASE EVENT DATE: 201405
